FAERS Safety Report 21589754 (Version 1)
Quarter: 2022Q4

REPORT INFORMATION
  Report Type: Report from Study
  Country: US (occurrence: US)
  Receive Date: 20221114
  Receipt Date: 20221114
  Transmission Date: 20230113
  Serious: No
  Sender: FDA-Public Use
  Company Number: US-ABBVIE-4159489

PATIENT
  Sex: Male

DRUGS (1)
  1. RINVOQ [Suspect]
     Active Substance: UPADACITINIB
     Indication: Systemic lupus erythematosus
     Route: 048
     Dates: end: 202207

REACTIONS (3)
  - Condition aggravated [Recovering/Resolving]
  - Off label use [Unknown]
  - Drug ineffective [Unknown]
